FAERS Safety Report 18432063 (Version 2)
Quarter: 2020Q4

REPORT INFORMATION
  Report Type: Report from Study
  Country: DE (occurrence: DE)
  Receive Date: 20201027
  Receipt Date: 20201127
  Transmission Date: 20210114
  Serious: Yes (Other)
  Sender: FDA-Public Use
  Company Number: NVSC2020DE288126

PATIENT
  Age: 43 Year
  Sex: Female
  Weight: 80 kg

DRUGS (11)
  1. COSENTYX [Suspect]
     Active Substance: SECUKINUMAB
     Dosage: 150 MG (ONCE)
     Route: 065
     Dates: start: 20200505
  2. COSENTYX [Suspect]
     Active Substance: SECUKINUMAB
     Dosage: 150 MG, QMO (ONCE)
     Route: 065
     Dates: start: 20200721
  3. TRAZODON [Concomitant]
     Active Substance: TRAZODONE HYDROCHLORIDE
     Indication: DEPRESSION
     Dosage: 100 MG, QD (IN THE EVENING)
     Route: 048
     Dates: start: 201910, end: 202002
  4. TRAZODON [Concomitant]
     Active Substance: TRAZODONE HYDROCHLORIDE
     Dosage: 200 MG, QD (IN THE EVENING)
     Route: 048
     Dates: start: 202002
  5. COSENTYX [Suspect]
     Active Substance: SECUKINUMAB
     Dosage: 150 MG, QW (ONCE)
     Route: 065
     Dates: start: 20200526
  6. COSENTYX [Suspect]
     Active Substance: SECUKINUMAB
     Indication: ANKYLOSING SPONDYLITIS
     Dosage: 150 MG, QW (ONCE)
     Route: 065
     Dates: start: 20200428
  7. COSENTYX [Suspect]
     Active Substance: SECUKINUMAB
     Dosage: 150 MG, QMO (ONCE)
     Route: 065
     Dates: start: 20200820
  8. COSENTYX [Suspect]
     Active Substance: SECUKINUMAB
     Dosage: 150 MG, QW (ONCE)
     Route: 065
     Dates: start: 20200512
  9. COSENTYX [Suspect]
     Active Substance: SECUKINUMAB
     Dosage: 150 MG, QW (ONCE)
     Route: 065
     Dates: start: 20200519
  10. COSENTYX [Suspect]
     Active Substance: SECUKINUMAB
     Dosage: 150 MG, QMO (ONCE)
     Route: 065
     Dates: start: 20200623
  11. CELECOXIB. [Concomitant]
     Active Substance: CELECOXIB
     Indication: ANKYLOSING SPONDYLITIS
     Dosage: 200 MG, BID (1 IN MORNING, 1 IN EVENING)
     Route: 048
     Dates: start: 201910

REACTIONS (2)
  - Otitis externa [Recovering/Resolving]
  - Myringitis [Recovered/Resolved]

NARRATIVE: CASE EVENT DATE: 20201016
